FAERS Safety Report 4699558-7 (Version None)
Quarter: 2005Q2

REPORT INFORMATION
  Report Type: 
  Country: None (occurrence: None)
  Receive Date: 20050624
  Receipt Date: 20050613
  Transmission Date: 20051028
  Serious: Yes (Hospitalization)
  Sender: FDA-Public Use
  Company Number: 2005UW09331

PATIENT
  Age: 54 Year
  Sex: Female

DRUGS (9)
  1. SEROQUEL [Suspect]
     Indication: DEPRESSION
     Dosage: 75 MG QAM, 75 MG @ 1600, 100 MG HS
     Route: 048
  2. LITHIUM [Suspect]
     Dates: start: 20050301
  3. MELLARIL [Concomitant]
  4. EFFEXOR XR [Concomitant]
     Dates: start: 20050101
  5. CLONAZEPAM [Concomitant]
  6. ATIVAN [Concomitant]
     Dates: start: 20050501
  7. LOPRESSOR [Concomitant]
     Indication: HYPERTENSION
  8. PARIET [Concomitant]
     Indication: HIATUS HERNIA
  9. PARIET [Concomitant]
     Indication: GASTROOESOPHAGEAL REFLUX DISEASE

REACTIONS (5)
  - BLOOD GLUCOSE FLUCTUATION [None]
  - BLOOD PROLACTIN INCREASED [None]
  - DEPRESSION [None]
  - LACTATION DISORDER [None]
  - WEIGHT INCREASED [None]
